FAERS Safety Report 8767163 (Version 1)
Quarter: 2012Q4

REPORT INFORMATION
  Report Type: 
  Country: US (occurrence: US)
  Receive Date: 20120904
  Receipt Date: 20120904
  Transmission Date: 20130627
  Serious: Yes (Death)
  Sender: FDA-Public Use
  Company Number: US-GLAXOSMITHKLINE-A0702491A

PATIENT
  Age: 53 Year
  Sex: Female
  Weight: 170.5 kg

DRUGS (8)
  1. AVANDIA [Suspect]
     Indication: TYPE 2 DIABETES MELLITUS
     Dosage: 8MG Per day
     Route: 048
     Dates: start: 200003, end: 200504
  2. HUMULIN [Concomitant]
  3. AMARYL [Concomitant]
  4. VIOXX [Concomitant]
  5. LEXAPRO [Concomitant]
  6. ZYRTEC [Concomitant]
  7. NASONEX [Concomitant]
  8. ZOCOR [Concomitant]

REACTIONS (3)
  - Gastrointestinal haemorrhage [Fatal]
  - Gastritis erosive [Fatal]
  - Liver disorder [Unknown]
